FAERS Safety Report 7919546-4 (Version None)
Quarter: 2011Q4

REPORT INFORMATION
  Report Type: 
  Country: None (occurrence: None)
  Receive Date: 20111115
  Receipt Date: 20111103
  Transmission Date: 20120403
  Serious: Yes (Hospitalization)
  Sender: FDA-Public Use
  Company Number: LTI201100286

PATIENT
  Age: 69 Year
  Sex: Male

DRUGS (5)
  1. ACTOS [Suspect]
     Indication: TYPE 2 DIABETES MELLITUS
     Dosage: 30 MG (15 MG, 2 IN 1 D), ORAL
     Route: 048
     Dates: start: 20071212, end: 20091101
  2. GLICLAZIDE (GLICLAZIDE) [Concomitant]
  3. MEDIATOR (BENFLUOREX HYDROCHLORIDE) [Concomitant]
  4. ATACAND [Concomitant]
  5. CELIPROLOL (CELIPROLOL) [Concomitant]

REACTIONS (1)
  - BLADDER CANCER [None]
